FAERS Safety Report 9624788 (Version 1)
Quarter: 2013Q4

REPORT INFORMATION
  Report Type: Spontaneous
  Country: US (occurrence: US)
  Receive Date: 20131015
  Receipt Date: 20131015
  Transmission Date: 20140711
  Serious: Yes (Hospitalization, Other)
  Sender: FDA-Public Use
  Company Number: US-MYLANLABS-2013S1022416

PATIENT
  Age: 53 Year
  Sex: Female

DRUGS (2)
  1. RILUZOLE [Suspect]
     Indication: MAJOR DEPRESSION
     Route: 048
  2. SERTRALINE [Concomitant]
     Indication: MAJOR DEPRESSION
     Dosage: 150MG DAILY
     Route: 065

REACTIONS (4)
  - Rhabdomyolysis [Unknown]
  - Amnesia [Recovering/Resolving]
  - Nausea [Unknown]
  - Vomiting [Unknown]
